FAERS Safety Report 7281333-0 (Version None)
Quarter: 2011Q1

REPORT INFORMATION
  Report Type: 
  Country: None (occurrence: None)
  Receive Date: 20110208
  Receipt Date: 20110203
  Transmission Date: 20110831
  Serious: Yes (Hospitalization, Other)
  Sender: FDA-Public Use
  Company Number: US-PFIZER INC-2010141211

PATIENT
  Sex: Female

DRUGS (10)
  1. PAXIL [Concomitant]
     Indication: DEPRESSION
     Dosage: UNK
     Dates: start: 20080101
  2. PREMARIN [Concomitant]
     Indication: HYSTERECTOMY
     Dosage: UNK
     Dates: start: 20040101, end: 20100510
  3. CHANTIX [Suspect]
     Dosage: 0.5 AND 1 MG
     Dates: start: 20091001, end: 20091101
  4. TRAMADOL [Concomitant]
     Indication: PAIN
     Dosage: UNK
     Dates: start: 20040601
  5. HYDROCODONE [Concomitant]
     Indication: PAIN
     Dosage: UNK
     Dates: start: 20040101
  6. GEODON [Concomitant]
     Indication: PSYCHOTIC DISORDER
     Dosage: UNK
     Dates: start: 20080101
  7. ACIPHEX [Concomitant]
     Indication: GASTROOESOPHAGEAL REFLUX DISEASE
     Dosage: UNK
     Dates: start: 20090601
  8. PAROXETINE [Concomitant]
     Indication: DEPRESSION
     Dosage: UNK
     Dates: start: 20080101
  9. CHANTIX [Suspect]
     Indication: SMOKING CESSATION THERAPY
     Dosage: 0.5 AND 1 MG
     Dates: start: 20090501, end: 20090701
  10. SEROQUEL [Concomitant]
     Indication: BIPOLAR DISORDER
     Dosage: UNK
     Dates: start: 20050301

REACTIONS (11)
  - SUICIDE ATTEMPT [None]
  - MANIA [None]
  - DEPRESSION [None]
  - INTENTIONAL OVERDOSE [None]
  - ANXIETY [None]
  - ABNORMAL BEHAVIOUR [None]
  - PARANOIA [None]
  - MENTAL IMPAIRMENT [None]
  - HOSTILITY [None]
  - FEAR [None]
  - THINKING ABNORMAL [None]
